FAERS Safety Report 4276204-8 (Version None)
Quarter: 2004Q1

REPORT INFORMATION
  Report Type: 
  Country: None (occurrence: None)
  Receive Date: 20040121
  Receipt Date: 20030417
  Transmission Date: 20041129
  Serious: Yes (Hospitalization)
  Sender: FDA-Public Use
  Company Number: US-GLAXOSMITHKLINE-A0405305A

PATIENT
  Age: 37 Year
  Sex: Male

DRUGS (2)
  1. ZIAGEN [Suspect]
     Route: 048
  2. AUGMENTIN [Suspect]
     Route: 048

REACTIONS (5)
  - ABDOMINAL PAIN [None]
  - HYPERSENSITIVITY [None]
  - PANCREATITIS ACUTE [None]
  - RASH [None]
  - VOMITING [None]
